FAERS Safety Report 10403106 (Version 2)
Quarter: 2014Q3

REPORT INFORMATION
  Report Type: Spontaneous
  Country: US (occurrence: US)
  Receive Date: 20140822
  Receipt Date: 20140822
  Transmission Date: 20150326
  Serious: Yes (Hospitalization)
  Sender: FDA-Public Use
  Company Number: US-GLAXOSMITHKLINE-A0761186A

PATIENT
  Sex: Female
  Weight: 77.3 kg

DRUGS (4)
  1. AVANDIA [Suspect]
     Active Substance: ROSIGLITAZONE MALEATE
     Indication: TYPE 2 DIABETES MELLITUS
     Dosage: 8MG PER DAY
     Route: 048
     Dates: start: 1999, end: 20081014
  2. MULTIVITAMIN [Concomitant]
     Active Substance: VITAMINS
  3. ATENOLOL. [Concomitant]
     Active Substance: ATENOLOL
  4. GLUCOTROL [Concomitant]
     Active Substance: GLIPIZIDE

REACTIONS (5)
  - Cardiac failure congestive [Unknown]
  - Pulmonary oedema [Unknown]
  - Pleural effusion [Unknown]
  - Myocardial infarction [Unknown]
  - Coronary artery disease [Unknown]
